FAERS Safety Report 6730129-4 (Version None)
Quarter: 2010Q2

REPORT INFORMATION
  Report Type: 
  Country: None (occurrence: None)
  Receive Date: 20100518
  Receipt Date: 20100510
  Transmission Date: 20101027
  Serious: Yes (Other)
  Sender: FDA-Public Use
  Company Number: US-SANOFI-AVENTIS-2010SA016297

PATIENT
  Age: 60 Year
  Sex: Male
  Weight: 122.47 kg

DRUGS (3)
  1. LANTUS [Suspect]
     Indication: TYPE 1 DIABETES MELLITUS
     Dosage: DOSE:70 UNIT(S)
     Route: 058
     Dates: start: 20060101
  2. LANTUS [Suspect]
     Dosage: DOSE:100 UNIT(S)
     Route: 058
  3. SOLOSTAR [Suspect]

REACTIONS (2)
  - BLINDNESS [None]
  - CORRECTIVE LENS USER [None]
